FAERS Safety Report 9762722 (Version 1)
Quarter: 2013Q4

REPORT INFORMATION
  Report Type: Spontaneous
  Country: IT (occurrence: IT)
  Receive Date: 20131216
  Receipt Date: 20131216
  Transmission Date: 20140711
  Serious: Yes (Hospitalization)
  Sender: FDA-Public Use
  Company Number: IT-B.I. PHARMACEUTICALS,INC./RIDGEFIELD-2013-BI-41475IT

PATIENT
  Age: 75 Year
  Sex: Female

DRUGS (3)
  1. PRADAXA [Suspect]
     Indication: ATRIAL FIBRILLATION
     Dosage: 220 MG
     Route: 048
     Dates: start: 20130722, end: 20131205
  2. ANTIHYPERTENSIVE [Concomitant]
     Indication: HYPERTENSION
  3. ORAL ANTIDIABETIC (NOT SPECIFIED) [Concomitant]
     Indication: DIABETES MELLITUS

REACTIONS (1)
  - Cerebrovascular accident [Not Recovered/Not Resolved]
